FAERS Safety Report 12172769 (Version 3)
Quarter: 2016Q1

REPORT INFORMATION
  Report Type: Spontaneous
  Country: CA (occurrence: CA)
  Receive Date: 20160311
  Receipt Date: 20160324
  Transmission Date: 20160526
  Serious: Yes (Hospitalization, Other)
  Sender: FDA-Public Use
  Company Number: CA-AMGEN-CANSP2016029473

PATIENT
  Age: 75 Year
  Sex: Female

DRUGS (26)
  1. ACLASTA [Concomitant]
     Active Substance: ZOLEDRONIC ACID
     Dosage: 750 MG, (EVERY FOUR WEEKS)
     Route: 042
  2. NEXIUM [Concomitant]
     Active Substance: ESOMEPRAZOLE MAGNESIUM
     Dosage: 40 MG ONE TAB, BID
  3. ENBREL [Suspect]
     Active Substance: ETANERCEPT
     Indication: RHEUMATOID ARTHRITIS
     Dosage: 50 MG, QWK
     Route: 058
     Dates: start: 200804, end: 201310
  4. PLAQUENIL [Suspect]
     Active Substance: HYDROXYCHLOROQUINE SULFATE
     Indication: PRODUCT USED FOR UNKNOWN INDICATION
     Dosage: UNK
     Route: 065
     Dates: start: 2008, end: 2008
  5. FENTANYL. [Suspect]
     Active Substance: FENTANYL
     Indication: PRODUCT USED FOR UNKNOWN INDICATION
     Dosage: UNK
     Route: 065
  6. ACTONEL [Concomitant]
     Active Substance: RISEDRONATE SODIUM
     Dosage: 36 MG, QWK
  7. TRAZODONE HYDROCHLORIDE. [Concomitant]
     Active Substance: TRAZODONE HYDROCHLORIDE
     Dosage: 50 MG, QHS
     Route: 048
  8. OMEGA-3 FATTY ACIDS [Concomitant]
     Active Substance: OMEGA-3 FATTY ACIDS
     Dosage: 1200 MG, BID
  9. DIPHENOXYLATE [Concomitant]
     Active Substance: DIPHENOXYLATE
     Dosage: 2.5/0.25 MG, QD
  10. LOMOTIL [Concomitant]
     Active Substance: ATROPINE SULFATE\DIPHENOXYLATE HYDROCHLORIDE
     Dosage: 2.5 MG, 3-4 TIMES/DAY
  11. SULFASALAZINE. [Suspect]
     Active Substance: SULFASALAZINE
     Indication: PRODUCT USED FOR UNKNOWN INDICATION
     Dosage: 2.5 G, DAILY
     Route: 048
     Dates: start: 200404, end: 2008
  12. OXYCONTIN [Suspect]
     Active Substance: OXYCODONE HYDROCHLORIDE
     Indication: PRODUCT USED FOR UNKNOWN INDICATION
     Dosage: UNK
     Route: 065
  13. CELEBREX [Suspect]
     Active Substance: CELECOXIB
     Indication: PRODUCT USED FOR UNKNOWN INDICATION
     Dosage: UNK
     Route: 048
  14. PREDNISONE. [Concomitant]
     Active Substance: PREDNISONE
     Dosage: 5 MG, QD
  15. FERROUS GLUCONATE [Concomitant]
     Active Substance: FERROUS GLUCONATE
     Dosage: 300 MG, ONE DAILY
  16. GABAPENTIN. [Concomitant]
     Active Substance: GABAPENTIN
     Dosage: 100 MG, BID
  17. TYLENOL [Concomitant]
     Active Substance: ACETAMINOPHEN
     Dosage: 500 MG 2 TABS, OD
     Route: 048
  18. CALCIUM [Concomitant]
     Active Substance: CALCIUM
     Dosage: UNK
  19. ACTEMRA [Suspect]
     Active Substance: TOCILIZUMAB
     Indication: PRODUCT USED FOR UNKNOWN INDICATION
     Dosage: 488 MG, Q4WK
     Route: 042
     Dates: start: 201310, end: 20150303
  20. NASONEX [Concomitant]
     Active Substance: MOMETASONE FUROATE
     Dosage: 2 SPRAYS PER NOSTRILS, BID
  21. PERCOCET                           /00446701/ [Concomitant]
     Active Substance: ACETAMINOPHEN\OXYCODONE HYDROCHLORIDE\OXYCODONE TEREPHTHALATE
     Indication: PAIN
     Dosage: 1 TAB, 4-6H PRN FOR PAIN
  22. ORENCIA [Suspect]
     Active Substance: ABATACEPT
     Indication: PRODUCT USED FOR UNKNOWN INDICATION
     Dosage: 750 MG, Q4WK
     Route: 042
     Dates: start: 20150331, end: 20160223
  23. METHOTREXATE [Suspect]
     Active Substance: METHOTREXATE
     Indication: RHEUMATOID ARTHRITIS
     Dosage: 7.5-12.5 MG, WEEKLY
     Route: 058
     Dates: start: 2008, end: 2009
  24. VITAMIN D                          /00107901/ [Concomitant]
     Active Substance: ERGOCALCIFEROL
     Dosage: 400 UNIT, QD
  25. GENTEAL                            /00445101/ [Concomitant]
     Active Substance: HYPROMELLOSE 2910 (4000 MPA.S)
     Indication: DRY EYE
     Dosage: 3M USE AS DIRECTED
  26. NORTRIPTYLINE HYDROCHLORIDE. [Concomitant]
     Active Substance: NORTRIPTYLINE HYDROCHLORIDE
     Dosage: 10 MG 1-3 TABS
     Route: 048

REACTIONS (27)
  - Pain [Unknown]
  - Pain in extremity [Unknown]
  - Osteoarthritis [Unknown]
  - Dry eye [Unknown]
  - Mobility decreased [Unknown]
  - Pleural fibrosis [Unknown]
  - Crohn^s disease [Unknown]
  - Exostosis [Unknown]
  - Diarrhoea [Unknown]
  - Osteosclerosis [Unknown]
  - Myocardial infarction [Unknown]
  - Arthralgia [Unknown]
  - Presbyacusis [Unknown]
  - Deafness neurosensory [Unknown]
  - Renal impairment [Unknown]
  - Arthropathy [Unknown]
  - Fatigue [Unknown]
  - Musculoskeletal stiffness [Unknown]
  - Osteopenia [Unknown]
  - Bone cyst [Unknown]
  - Deformity [Unknown]
  - Hypersensitivity [Unknown]
  - Rheumatoid arthritis [Unknown]
  - Joint swelling [Unknown]
  - Skin lesion [Unknown]
  - Drug effect decreased [Unknown]
  - Sleep disorder [Unknown]

NARRATIVE: CASE EVENT DATE: 200901
